FAERS Safety Report 6162496-7 (Version None)
Quarter: 2009Q2

REPORT INFORMATION
  Report Type: 
  Country: None (occurrence: None)
  Receive Date: 20090421
  Receipt Date: 20090414
  Transmission Date: 20091009
  Serious: Yes (Other)
  Sender: FDA-Public Use
  Company Number: US-JNJCH-2009010411

PATIENT
  Age: 66 Year
  Sex: Male
  Weight: 99.8 kg

DRUGS (3)
  1. ZYRTEC [Suspect]
     Indication: HYPERSENSITIVITY
     Dosage: TEXT:ONE PILL ONE TIME
     Route: 048
     Dates: start: 20090413, end: 20090413
  2. COREG [Concomitant]
     Indication: BLOOD PRESSURE
     Dosage: TEXT:25 MGS/ 2X
     Route: 065
  3. AVAPRO [Concomitant]
     Indication: BLOOD PRESSURE
     Dosage: TEXT:150 MGX 2X
     Route: 065

REACTIONS (2)
  - BLOOD PRESSURE INCREASED [None]
  - WRONG DRUG ADMINISTERED [None]
